FAERS Safety Report 9353259 (Version 1)
Quarter: 2013Q2

REPORT INFORMATION
  Report Type: Spontaneous
  Country: US (occurrence: US)
  Receive Date: 20130618
  Receipt Date: 20130618
  Transmission Date: 20140414
  Serious: No
  Sender: FDA-Public Use
  Company Number: US-PFIZER INC-2013181639

PATIENT
  Age: 52 Year
  Sex: Female

DRUGS (9)
  1. DILANTIN-125 [Suspect]
     Dosage: UNK
  2. MORPHINE SULFATE [Suspect]
     Dosage: UNK
  3. ERYTHROMYCIN [Suspect]
     Dosage: UNK
  4. CODEINE [Suspect]
     Dosage: UNK
  5. VICODIN [Suspect]
     Dosage: UNK
  6. HYDROCODONE [Suspect]
     Dosage: UNK
  7. VALIUM [Suspect]
     Dosage: UNK
  8. IODINE [Suspect]
     Dosage: UNK
  9. PHENERGAN [Suspect]
     Dosage: UNK

REACTIONS (2)
  - Drug hypersensitivity [Unknown]
  - Food allergy [Unknown]
